FAERS Safety Report 4530216-5 (Version None)
Quarter: 2004Q4

REPORT INFORMATION
  Report Type: 
  Country: None (occurrence: None)
  Receive Date: 20041216
  Receipt Date: 20041216
  Transmission Date: 20050328
  Serious: No
  Sender: FDA-Public Use
  Company Number: None

PATIENT
  Age: 59 Year
  Sex: Male
  Weight: 72 kg

DRUGS (5)
  1. DAPTOMYCIN   500MG   CUBIST [Suspect]
     Indication: ARTHRITIS INFECTIVE
     Dosage: 320MG   QD   INTRAVENOU
     Route: 042
     Dates: start: 20041118, end: 20041213
  2. DAPTOMYCIN   500MG   CUBIST [Suspect]
     Indication: MEDICAL DEVICE COMPLICATION
     Dosage: 320MG   QD   INTRAVENOU
     Route: 042
     Dates: start: 20041118, end: 20041213
  3. MOXIFLOXACIN HYDROCHLORIDE [Concomitant]
  4. RIFAMPICIN [Concomitant]
  5. BENAZEPRIL HCL [Concomitant]

REACTIONS (1)
  - BLOOD CREATINE PHOSPHOKINASE INCREASED [None]
